FAERS Safety Report 9386575 (Version 1)
Quarter: 2013Q3

REPORT INFORMATION
  Report Type: Spontaneous
  Country: US (occurrence: None)
  Receive Date: 20130703
  Receipt Date: 20130703
  Transmission Date: 20140515
  Serious: Yes (Death, Life-Threatening, Hospitalization)
  Sender: FDA-Public Use
  Company Number: None

PATIENT
  Age: 95 Year
  Sex: Male
  Weight: 65.9 kg

DRUGS (1)
  1. ACETAZOLAMIDE [Suspect]
     Indication: INTRAOCULAR PRESSURE INCREASED
     Dosage: 500 MG OF ACETAZOLAMIDE 2X DAILY
     Dates: start: 20130508, end: 20130510

REACTIONS (5)
  - Confusional state [None]
  - Asthenia [None]
  - Loss of consciousness [None]
  - General physical health deterioration [None]
  - Cerebrovascular accident [None]
